FAERS Safety Report 17806309 (Version 1)
Quarter: 2020Q2

REPORT INFORMATION
  Report Type: Spontaneous
  Country: US (occurrence: US)
  Receive Date: 20200520
  Receipt Date: 20200520
  Transmission Date: 20200714
  Serious: Yes (Death, Other)
  Sender: FDA-Public Use
  Company Number: US-UNITED THERAPEUTICS-UNT-2020-007318

PATIENT
  Age: 6 Year
  Sex: Male

DRUGS (2)
  1. ISOTRETINOIN. [Suspect]
     Active Substance: ISOTRETINOIN
     Indication: NEUROBLASTOMA
     Dosage: 160 MG/M2/DAY (IN TWO DOSE FOR 14 DAYS GIVEN EVERY 28 DAYS FOR SIX COURSE)
     Route: 065
  2. UNITUXIN [Suspect]
     Active Substance: DINUTUXIMAB
     Indication: NEUROBLASTOMA
     Dosage: UNK
     Route: 041

REACTIONS (4)
  - Knee deformity [Recovering/Resolving]
  - Body height below normal [Unknown]
  - Mydriasis [Unknown]
  - Neuroblastoma [Fatal]
